FAERS Safety Report 13914087 (Version 1)
Quarter: 2017Q3

REPORT INFORMATION
  Report Type: Spontaneous
  Country: US (occurrence: US)
  Receive Date: 20170828
  Receipt Date: 20170828
  Transmission Date: 20171127
  Serious: No
  Sender: FDA-Public Use
  Company Number: US-ROCHE-1128840

PATIENT
  Age: 10 Year
  Sex: Male
  Weight: 23 kg

DRUGS (1)
  1. NUTROPIN [Suspect]
     Active Substance: SOMATROPIN
     Indication: DWARFISM
     Dosage: 0.3 MG/KG/WK
     Route: 058
     Dates: start: 19961127

REACTIONS (1)
  - Pain [Unknown]

NARRATIVE: CASE EVENT DATE: 19961127
